FAERS Safety Report 4683855-5 (Version None)
Quarter: 2005Q2

REPORT INFORMATION
  Report Type: 
  Country: None (occurrence: None)
  Receive Date: 20050607
  Receipt Date: 20050523
  Transmission Date: 20051028
  Serious: Yes (Other)
  Sender: FDA-Public Use
  Company Number: GB-BOEHRINGER INGELHEIM PHARMACEUTICALS, INC.-2005-DE-01946GD

PATIENT
  Sex: Male

DRUGS (3)
  1. NEVIRAPINE [Suspect]
     Indication: HIV ANTIBODY POSITIVE
  2. DIDANOSINE [Suspect]
     Indication: HIV ANTIBODY POSITIVE
  3. STAVUDINE [Suspect]
     Indication: HIV ANTIBODY POSITIVE

REACTIONS (2)
  - HEPATITIS [None]
  - HEPATITIS B [None]
